FAERS Safety Report 5686417-6 (Version None)
Quarter: 2008Q1

REPORT INFORMATION
  Report Type: 
  Country: None (occurrence: None)
  Receive Date: 20080328
  Receipt Date: 20070807
  Transmission Date: 20080703
  Serious: No
  Sender: FDA-Public Use
  Company Number: US-BAYER-US-2007-029428

PATIENT
  Age: 27 Year
  Sex: Female
  Weight: 61 kg

DRUGS (4)
  1. MIRENA [Suspect]
     Indication: CONTRACEPTION
     Route: 015
     Dates: start: 20070301
  2. VERAPAMIL [Concomitant]
  3. TRIAMTERENE [Concomitant]
  4. VITAMIN CAP [Concomitant]

REACTIONS (7)
  - ACNE [None]
  - ALOPECIA [None]
  - AMENORRHOEA [None]
  - FEELING ABNORMAL [None]
  - NAUSEA [None]
  - PROCEDURAL PAIN [None]
  - VOMITING [None]
